FAERS Safety Report 13682216 (Version 3)
Quarter: 2017Q4

REPORT INFORMATION
  Report Type: Report from Study
  Country: NL (occurrence: NL)
  Receive Date: 20170623
  Receipt Date: 20171031
  Transmission Date: 20180320
  Serious: Yes (Death, Other)
  Sender: FDA-Public Use
  Company Number: NL-TOLMAR, INC.-2017NL008082

PATIENT
  Sex: Male

DRUGS (3)
  1. ELIGARD [Suspect]
     Active Substance: LEUPROLIDE ACETATE
     Dosage: 45 MG, EVERY 6 MONTHS
     Route: 058
     Dates: start: 20160803
  2. ELIGARD [Suspect]
     Active Substance: LEUPROLIDE ACETATE
     Dosage: 45 MG, EVERY 6 MONTHS
     Route: 058
     Dates: start: 20170131
  3. ELIGARD [Suspect]
     Active Substance: LEUPROLIDE ACETATE
     Indication: PROSTATE CANCER
     Dosage: 45 MG, EVERY 6 MONTHS
     Route: 058
     Dates: start: 20160209

REACTIONS (15)
  - Pancreatitis [Unknown]
  - Cholangiocarcinoma [Unknown]
  - Cardiac failure [Unknown]
  - Cardiac murmur [Unknown]
  - Cardiac valve disease [Unknown]
  - Gastrointestinal haemorrhage [Unknown]
  - Endocarditis [Unknown]
  - Urinary tract infection [Unknown]
  - Normocytic anaemia [Unknown]
  - Colon cancer [Unknown]
  - Klebsiella infection [Unknown]
  - Chronic disease [Unknown]
  - Neoplasm malignant [Unknown]
  - Constipation [Unknown]
  - Death [Fatal]
